FAERS Safety Report 7823086-0 (Version None)
Quarter: 2011Q4

REPORT INFORMATION
  Report Type: 
  Country: None (occurrence: None)
  Receive Date: 20111019
  Receipt Date: 20111006
  Transmission Date: 20120403
  Serious: Yes (Life-Threatening)
  Sender: FDA-Public Use
  Company Number: CA-ALVOGEN-2011AL000082

PATIENT
  Age: 60 Year
  Sex: Female
  Weight: 71.22 kg

DRUGS (4)
  1. DIOVAN [Concomitant]
     Indication: PRODUCT USED FOR UNKNOWN INDICATION
  2. ACEBUTOLOL [Concomitant]
     Indication: PRODUCT USED FOR UNKNOWN INDICATION
  3. VITAMIN D [Concomitant]
     Indication: PRODUCT USED FOR UNKNOWN INDICATION
  4. MACROBID [Suspect]
     Indication: PRODUCT USED FOR UNKNOWN INDICATION
     Route: 048

REACTIONS (28)
  - OEDEMA PERIPHERAL [None]
  - MALAISE [None]
  - STOMATITIS [None]
  - FLUSHING [None]
  - RESPIRATORY RATE INCREASED [None]
  - THYROID DISORDER [None]
  - URTICARIA [None]
  - DIARRHOEA [None]
  - DRUG HYPERSENSITIVITY [None]
  - ABDOMINAL DISCOMFORT [None]
  - APHAGIA [None]
  - AUTOIMMUNE THYROIDITIS [None]
  - CYANOSIS [None]
  - DYSPNOEA [None]
  - ABDOMINAL PAIN [None]
  - NAUSEA [None]
  - FATIGUE [None]
  - PALLOR [None]
  - PRURITUS GENERALISED [None]
  - BLOOD PRESSURE INCREASED [None]
  - GOITRE [None]
  - TREMOR [None]
  - WEIGHT INCREASED [None]
  - CHILLS [None]
  - VOMITING [None]
  - DEHYDRATION [None]
  - HEART RATE INCREASED [None]
  - HYPERHIDROSIS [None]
